FAERS Safety Report 5793014-0 (Version None)
Quarter: 2008Q2

REPORT INFORMATION
  Report Type: 
  Country: None (occurrence: None)
  Receive Date: 20080627
  Receipt Date: 20080625
  Transmission Date: 20081010
  Serious: Yes (Death, Hospitalization)
  Sender: FDA-Public Use
  Company Number: PHEH2007US12933

PATIENT
  Sex: Female

DRUGS (9)
  1. EXJADE [Suspect]
     Indication: IRON OVERLOAD
     Dosage: 1125 MG, QD
     Route: 048
     Dates: start: 20070316
  2. EXJADE [Suspect]
     Indication: MYELODYSPLASTIC SYNDROME
  3. CELESTONE TAB [Concomitant]
     Dosage: UNK
     Dates: start: 20070427
  4. K-DUR [Concomitant]
     Dosage: 20 MEQ, 1 HOUR BEFORE TRANSFUSION
     Route: 048
  5. KEFLEX [Concomitant]
     Dosage: 250 MG, TID
     Route: 048
     Dates: start: 20070725
  6. CIPROFLOXACIN HCL [Concomitant]
     Dosage: 500 MG, BID
     Route: 048
  7. TYLENOL [Concomitant]
     Dosage: 650 MG, PRIOR TO TRANSFUSION
  8. BENADRYL [Concomitant]
     Dosage: 12.5 MG, PRIOR TO TRANSFUSION
     Route: 042
  9. LASIX [Concomitant]
     Dosage: 20 MG, AFTER 1ST UNIT OF PRBC
     Route: 042

REACTIONS (13)
  - CARDIAC FAILURE CONGESTIVE [None]
  - CARDIOMEGALY [None]
  - HAEMATOCRIT DECREASED [None]
  - HAEMOGLOBIN DECREASED [None]
  - LUNG CONSOLIDATION [None]
  - MYELODYSPLASTIC SYNDROME [None]
  - NEUTROPHIL COUNT DECREASED [None]
  - PLATELET COUNT DECREASED [None]
  - PLEURAL EFFUSION [None]
  - PNEUMONIA [None]
  - PYREXIA [None]
  - RALES [None]
  - WHITE BLOOD CELL COUNT DECREASED [None]
